FAERS Safety Report 5265626-4 (Version None)
Quarter: 2007Q1

REPORT INFORMATION
  Report Type: 
  Country: None (occurrence: None)
  Receive Date: 20061213
  Receipt Date: 20021007
  Transmission Date: 20070707
  Serious: No
  Sender: FDA-Public Use
  Company Number: 2002UW10429

PATIENT
  Sex: Female

DRUGS (1)
  1. TAMOXIFEN CITRATE [Suspect]
     Dosage: 10 MG PO
     Route: 048
     Dates: start: 20000301

REACTIONS (5)
  - FAECAL INCONTINENCE [None]
  - ILL-DEFINED DISORDER [None]
  - NEOPLASM MALIGNANT [None]
  - OEDEMA MOUTH [None]
  - URINARY INCONTINENCE [None]
